FAERS Safety Report 4630444-4 (Version None)
Quarter: 2005Q2

REPORT INFORMATION
  Report Type: 
  Country: None (occurrence: None)
  Receive Date: 20050406
  Receipt Date: 20050323
  Transmission Date: 20051028
  Serious: Yes (Hospitalization, Other)
  Sender: FDA-Public Use
  Company Number: USA040977204

PATIENT
  Age: 76 Year
  Sex: Female
  Weight: 61 kg

DRUGS (18)
  1. FORTEO [Suspect]
     Indication: OSTEOPOROSIS
     Dosage: 20 UG/1 DAY
     Dates: start: 20040601
  2. LEXAPRO [Concomitant]
  3. PROTONIX [Concomitant]
  4. RANITIDINE [Concomitant]
  5. AVANDIA [Concomitant]
  6. ALPHAGAN [Concomitant]
  7. AMBIEN [Concomitant]
  8. CO-Q10 (UBIDECARENONE) [Concomitant]
  9. CORAL CALCIUM [Concomitant]
  10. FLAX SEED OIL [Concomitant]
  11. GINKGO BILOBA [Concomitant]
  12. GINSENG [Concomitant]
  13. MULTI-VITAMIN [Concomitant]
  14. VITAMIN E [Concomitant]
  15. VITAMIN C [Concomitant]
  16. TIMOPTIC [Concomitant]
  17. TYLENOL (CAPLET) [Concomitant]
  18. TYLENOL [Concomitant]

REACTIONS (22)
  - AORTIC ATHEROSCLEROSIS [None]
  - AORTIC VALVE INCOMPETENCE [None]
  - BALANCE DISORDER [None]
  - CARDIAC DISORDER [None]
  - CEREBRAL ATROPHY [None]
  - DIABETES MELLITUS [None]
  - DIABETIC MICROANGIOPATHY [None]
  - DIZZINESS [None]
  - FALL [None]
  - FEELING HOT [None]
  - HEAD INJURY [None]
  - HYPERHIDROSIS [None]
  - MITRAL VALVE CALCIFICATION [None]
  - MITRAL VALVE INCOMPETENCE [None]
  - MUSCULOSKELETAL DISCOMFORT [None]
  - NASOPHARYNGITIS [None]
  - NERVOUS SYSTEM DISORDER [None]
  - PHARMACEUTICAL PRODUCT COMPLAINT [None]
  - PULMONARY VALVE INCOMPETENCE [None]
  - ROAD TRAFFIC ACCIDENT [None]
  - SYNCOPE [None]
  - VERTIGO [None]
